FAERS Safety Report 10075008 (Version 3)
Quarter: 2014Q3

REPORT INFORMATION
  Report Type: Spontaneous
  Country: JP (occurrence: JP)
  Receive Date: 20140414
  Receipt Date: 20140703
  Transmission Date: 20150326
  Serious: Yes (Other)
  Sender: FDA-Public Use
  Company Number: JP-TEVA-474967ISR

PATIENT
  Age: 67 Year
  Sex: Male

DRUGS (2)
  1. 5-FU [Concomitant]
     Active Substance: FLUOROURACIL
     Indication: OESOPHAGEAL CARCINOMA
     Dosage: 1170 MILLIGRAM DAILY; DAILY DOSE: 1170 MG, DAILY X 5 DAYS
  2. CISPLATIN. [Suspect]
     Active Substance: CISPLATIN
     Indication: OESOPHAGEAL CARCINOMA
     Dosage: 117 MILLIGRAM DAILY; DAILY DOSE: 117 MG, DAILY X1 DAY

REACTIONS (2)
  - Nervous system disorder [Unknown]
  - Inappropriate antidiuretic hormone secretion [Unknown]
